FAERS Safety Report 8957489 (Version 2)
Quarter: 2013Q1

REPORT INFORMATION
  Report Type: Spontaneous
  Country: GB (occurrence: GB)
  Receive Date: 20121210
  Receipt Date: 20130308
  Transmission Date: 20140127
  Serious: Yes (Hospitalization, Other)
  Sender: FDA-Public Use
  Company Number: GB-009507513-1212GBR002203

PATIENT
  Age: 69 Year
  Sex: Male

DRUGS (3)
  1. SIMVASTATIN [Suspect]
     Indication: HYPERCHOLESTEROLAEMIA
     Dosage: 40 MG, ONCE
     Route: 048
     Dates: end: 20060415
  2. RAMIPRIL [Suspect]
     Indication: HYPERTENSION
     Dosage: 5 MG DAILY
  3. ASPIRIN [Suspect]
     Indication: MYOCARDIAL ISCHAEMIA
     Dosage: 75 MG DAILY

REACTIONS (2)
  - Tubulointerstitial nephritis [Recovering/Resolving]
  - Dialysis [Unknown]
